FAERS Safety Report 8974670 (Version 1)
Quarter: 2012Q4

REPORT INFORMATION
  Report Type: 
  Country: US (occurrence: US)
  Receive Date: 20121219
  Receipt Date: 20121219
  Transmission Date: 20130627
  Serious: Yes (Other)
  Sender: FDA-Public Use
  Company Number: US-MYLANLABS-2012S1025352

PATIENT
  Age: 54 Year
  Sex: Male

DRUGS (4)
  1. BUDESONIDE [Suspect]
     Indication: GRAFT VERSUS HOST DISEASE
     Dosage: 9 mg/d
     Route: 048
  2. TACROLIMUS [Concomitant]
     Route: 065
  3. INFLIXIMAB [Concomitant]
     Route: 065
  4. RITUXIMAB [Concomitant]
     Route: 065

REACTIONS (2)
  - Cushing^s syndrome [Unknown]
  - Drug interaction [Unknown]
